FAERS Safety Report 25973735 (Version 1)
Quarter: 2025Q4

REPORT INFORMATION
  Report Type: Spontaneous
  Country: US (occurrence: US)
  Receive Date: 20251029
  Receipt Date: 20251029
  Transmission Date: 20260117
  Serious: No
  Sender: AMNEAL
  Company Number: US-AMNEAL PHARMACEUTICALS-2025-AMRX-02016

PATIENT

DRUGS (3)
  1. PROGESTERONE [Suspect]
     Active Substance: PROGESTERONE
     Indication: Contraception
     Dosage: UNK
     Route: 065
     Dates: start: 20250518
  2. COMIRNATY (TOZINAMERAN) [Suspect]
     Active Substance: TOZINAMERAN
     Indication: Product used for unknown indication
     Dosage: 30 MCG/0.3ML LNJ BOOSTER DOSE
     Route: 065
     Dates: start: 20250412, end: 20250412
  3. COMIRNATY (TOZINAMERAN) [Suspect]
     Active Substance: TOZINAMERAN
     Dosage: 30 MCG/0.3ML LNJ
     Route: 065
     Dates: start: 20250512, end: 20250512

REACTIONS (5)
  - Haemoglobin abnormal [Not Recovered/Not Resolved]
  - Pallor [Not Recovered/Not Resolved]
  - Vaginal haemorrhage [Not Recovered/Not Resolved]
  - Hypertension [Not Recovered/Not Resolved]
  - Asthenia [Not Recovered/Not Resolved]

NARRATIVE: CASE EVENT DATE: 20250415
